FAERS Safety Report 25950853 (Version 1)
Quarter: 2025Q4

REPORT INFORMATION
  Report Type: Spontaneous
  Country: US (occurrence: US)
  Receive Date: 20251023
  Receipt Date: 20251023
  Transmission Date: 20260118
  Serious: No
  Sender: LEO PHARM
  Company Number: US-LEO Pharma-383646

PATIENT
  Age: 13 Year
  Sex: Male

DRUGS (1)
  1. ADBRY [Suspect]
     Active Substance: TRALOKINUMAB-LDRM
     Indication: Dermatitis atopic
     Dosage: 2 SYRINGES (300MG) UNDER THE SKIN ON DAY 1??EXPIRATION DATE 2027-04-30

REACTIONS (1)
  - Hypersensitivity [Recovered/Resolved]
